FAERS Safety Report 10249413 (Version 1)
Quarter: 2014Q2

REPORT INFORMATION
  Report Type: Spontaneous
  Country: CH (occurrence: CH)
  Receive Date: 20140620
  Receipt Date: 20140620
  Transmission Date: 20141212
  Serious: Yes (Other)
  Sender: FDA-Public Use
  Company Number: CH-ASTRAZENECA-2014SE41175

PATIENT
  Age: 66 Year
  Sex: Male

DRUGS (13)
  1. DISOPRIVAN [Suspect]
     Indication: TONGUE OPERATION
     Dosage: 670 MG TOTAL INTRAOPERATIVE
     Route: 042
     Dates: start: 20140528, end: 20140528
  2. PERFALGAN [Suspect]
     Indication: TONGUE OPERATION
     Route: 041
     Dates: start: 20140528, end: 20140528
  3. PERFALGAN [Suspect]
     Indication: TONGUE OPERATION
     Dosage: DAFALGAN, 1 G EVERY SIX HOURS
     Route: 048
     Dates: start: 20140529
  4. FENTANYL [Suspect]
     Indication: TONGUE OPERATION
     Dosage: 300 MG TOTAL INTRAOPERATIVE
     Route: 042
     Dates: start: 20140528, end: 20140528
  5. MORPHIN [Suspect]
     Indication: TONGUE OPERATION
     Dosage: 5 MG TOTAL POSTOPERATIVE
     Route: 042
     Dates: start: 20140528, end: 20140528
  6. ULTIVA [Suspect]
     Indication: TONGUE OPERATION
     Dosage: INTRAOPERATIVE
     Route: 065
     Dates: start: 20140528, end: 20140528
  7. DALACIN C [Suspect]
     Indication: TONGUE OPERATION
     Dosage: 600 MG 1 TOTAL INTRAOPERATIVE
     Route: 041
     Dates: start: 20140528, end: 20140528
  8. DALACIN C [Suspect]
     Indication: TONGUE OPERATION
     Route: 048
     Dates: start: 20140528
  9. TRACRIUM [Suspect]
     Indication: TONGUE OPERATION
     Dosage: 35 MG TOTAL INTRAOPERATIVE
     Route: 048
     Dates: start: 20140528, end: 20140528
  10. SIDROGA SALBEIBLAE [Suspect]
     Indication: TONGUE OPERATION
     Route: 002
     Dates: start: 20140528
  11. FRAXIPARINE [Suspect]
     Indication: THROMBOSIS PROPHYLAXIS
     Dosage: 0.3 ML TOTAL
     Route: 058
     Dates: start: 20140528
  12. EPHEDRIN [Concomitant]
     Indication: TONGUE OPERATION
     Dosage: 35 MG TOTAL INTRAOPERATIVE
     Route: 042
     Dates: start: 20140528, end: 20140528
  13. TOPIRAMAT [Concomitant]
     Indication: EPILEPSY
     Dosage: 100 MG 1-0-1-0
     Route: 048

REACTIONS (3)
  - Pruritus [Unknown]
  - Flushing [Unknown]
  - Swelling face [Recovering/Resolving]
